FAERS Safety Report 16053463 (Version 1)
Quarter: 2019Q1

REPORT INFORMATION
  Report Type: Spontaneous
  Country: ES (occurrence: ES)
  Receive Date: 20190308
  Receipt Date: 20190308
  Transmission Date: 20190418
  Serious: Yes (Death)
  Sender: FDA-Public Use
  Company Number: ES-MYLANLABS-2019M1021316

PATIENT
  Age: 89 Year
  Sex: Female

DRUGS (1)
  1. BISOPROLOL [Suspect]
     Active Substance: BISOPROLOL
     Indication: TACHYCARDIA
     Dosage: 1.25 MILLIGRAM, QD
     Route: 048
     Dates: start: 20150703, end: 20180708

REACTIONS (1)
  - Sinus bradycardia [Fatal]

NARRATIVE: CASE EVENT DATE: 20180708
